FAERS Safety Report 11178269 (Version 1)
Quarter: 2015Q2

REPORT INFORMATION
  Report Type: Spontaneous
  Country: US (occurrence: US)
  Receive Date: 20150610
  Receipt Date: 20150610
  Transmission Date: 20150821
  Serious: Yes (Hospitalization, Other)
  Sender: FDA-Public Use
  Company Number: US-SA-2015SA077518

PATIENT
  Age: 50 Year
  Sex: Male

DRUGS (4)
  1. FLOLAN [Suspect]
     Active Substance: EPOPROSTENOL SODIUM
     Indication: PULMONARY HYPERTENSION
     Dosage: DOSE 47.5 NG/KG/MIN?ROUTE IV INFUSION
     Route: 042
     Dates: start: 19990510
  2. LASIX [Suspect]
     Active Substance: FUROSEMIDE
     Route: 065
  3. REVATIO [Concomitant]
     Active Substance: SILDENAFIL CITRATE
  4. FLOLAN [Suspect]
     Active Substance: EPOPROSTENOL SODIUM
     Indication: COR PULMONALE CHRONIC
     Dosage: DOSE 47.5 NG/KG/MIN?ROUTE IV INFUSION
     Route: 042
     Dates: start: 19990510

REACTIONS (5)
  - Pericardial effusion [Not Recovered/Not Resolved]
  - Hospitalisation [Unknown]
  - Weight decreased [Unknown]
  - Incorrect dose administered [Unknown]
  - Haemoptysis [Unknown]

NARRATIVE: CASE EVENT DATE: 201504
